FAERS Safety Report 12290917 (Version 2)
Quarter: 2016Q3

REPORT INFORMATION
  Report Type: Spontaneous
  Country: US (occurrence: US)
  Receive Date: 20160421
  Receipt Date: 20160708
  Transmission Date: 20161109
  Serious: Yes (Hospitalization, Other)
  Sender: FDA-Public Use
  Company Number: US-BAYER-2016-073601

PATIENT
  Age: 28 Year
  Sex: Female
  Weight: 54.42 kg

DRUGS (1)
  1. MIRENA [Suspect]
     Active Substance: LEVONORGESTREL
     Indication: CONTRACEPTION
     Dosage: 20 MCG/24HR, CONT
     Route: 015
     Dates: start: 20080123, end: 20130930

REACTIONS (12)
  - Device difficult to use [None]
  - Device dislocation [None]
  - High risk pregnancy [None]
  - Weight decreased [None]
  - Device issue [None]
  - Pregnancy with contraceptive device [None]
  - Drug ineffective [None]
  - Medical device pain [None]
  - Abdominal pain [None]
  - Depression [None]
  - Anxiety [None]
  - Perinatal depression [None]

NARRATIVE: CASE EVENT DATE: 2012
